FAERS Safety Report 6446948-8 (Version None)
Quarter: 2009Q4

REPORT INFORMATION
  Report Type: 
  Country: None (occurrence: None)
  Receive Date: 20091119
  Receipt Date: 20091110
  Transmission Date: 20100525
  Serious: No
  Sender: FDA-Public Use
  Company Number: US-ROXANE LABORATORIES, INC.-2009-RO-01160RO

PATIENT
  Sex: Female

DRUGS (3)
  1. OXCARBAZEPINE [Suspect]
     Indication: BIPOLAR DISORDER
     Dosage: 900 MG
     Route: 048
     Dates: start: 20091027, end: 20091106
  2. MOTRIN [Concomitant]
     Indication: NASOPHARYNGITIS
  3. COUGH DROPS [Concomitant]
     Indication: NASOPHARYNGITIS

REACTIONS (3)
  - ABDOMINAL DISCOMFORT [None]
  - CHEST DISCOMFORT [None]
  - TACHYCARDIA [None]
